FAERS Safety Report 5413387-8 (Version None)
Quarter: 2007Q3

REPORT INFORMATION
  Report Type: 
  Country: None (occurrence: None)
  Receive Date: 20070814
  Receipt Date: 20070803
  Transmission Date: 20080115
  Serious: Yes (Hospitalization, Other)
  Sender: FDA-Public Use
  Company Number: ZA-JNJFOC-20070800882

PATIENT
  Age: 41 Year
  Sex: Female

DRUGS (1)
  1. TAVANIC [Suspect]
     Indication: RENAL STONE REMOVAL
     Route: 042

REACTIONS (2)
  - DEEP VEIN THROMBOSIS [None]
  - TENDON RUPTURE [None]
